FAERS Safety Report 7782673-9 (Version None)
Quarter: 2011Q3

REPORT INFORMATION
  Report Type: 
  Country: None (occurrence: None)
  Receive Date: 20110928
  Receipt Date: 20110927
  Transmission Date: 20111222
  Serious: Yes (Death)
  Sender: FDA-Public Use
  Company Number: PHHY2011AT85402

PATIENT
  Age: 17 Month

DRUGS (1)
  1. TRILEPTAL [Suspect]
     Indication: EPILEPSY
     Dosage: 1 ML, QD
     Route: 048

REACTIONS (1)
  - MYOCARDIAL ISCHAEMIA [None]
